FAERS Safety Report 10015676 (Version 2)
Quarter: 2014Q2

REPORT INFORMATION
  Report Type: Spontaneous
  Country: US (occurrence: US)
  Receive Date: 20140317
  Receipt Date: 20140402
  Transmission Date: 20141212
  Serious: No
  Sender: FDA-Public Use
  Company Number: US-PFIZER INC-2014073720

PATIENT
  Sex: Female

DRUGS (2)
  1. NEURONTIN [Suspect]
     Indication: FIBROMYALGIA
     Dosage: 3000 MG (BY TAKING 600MG IN MORNING AND 2400MG IN EVENING), IN A DAY
     Dates: end: 20140307
  2. NEURONTIN [Suspect]
     Indication: NEURALGIA

REACTIONS (2)
  - Malaise [Unknown]
  - Drug withdrawal syndrome [Unknown]
